FAERS Safety Report 6431447-X (Version None)
Quarter: 2009Q4

REPORT INFORMATION
  Report Type: 
  Country: None (occurrence: None)
  Receive Date: 20091105
  Receipt Date: 20091105
  Transmission Date: 20100525
  Serious: Yes (Life-Threatening, Disabling, Other)
  Sender: FDA-Public Use
  Company Number: None

PATIENT
  Age: 65 Year
  Sex: Female
  Weight: 63.5036 kg

DRUGS (1)
  1. BONIVA [Suspect]
     Indication: OSTEOPOROSIS
     Dosage: IV EVERY 3 MOS. TO BE TAKEN 4X A YEAR IN SECTION (IV)
     Route: 042
     Dates: start: 20080701, end: 20091001

REACTIONS (4)
  - INJURY [None]
  - LOOSE TOOTH [None]
  - TOOTH EXTRACTION [None]
  - TOOTH SOCKET HAEMORRHAGE [None]
